FAERS Safety Report 15193941 (Version 4)
Quarter: 2018Q3

REPORT INFORMATION
  Report Type: Report from Study
  Country: DE (occurrence: DE)
  Receive Date: 20180725
  Receipt Date: 20180914
  Transmission Date: 20181010
  Serious: Yes (Other)
  Sender: FDA-Public Use
  Company Number: DE-AUROBINDO-AUR-APL-2018-037200

PATIENT
  Age: 24 Year
  Sex: Female

DRUGS (16)
  1. HYDROXYCHLOROQUINE [Suspect]
     Active Substance: HYDROXYCHLOROQUINE
     Indication: PRODUCT USED FOR UNKNOWN INDICATION
     Dosage: GESTATIONAL WEEK 0?14
     Route: 065
  2. RIVAROXABAN [Suspect]
     Active Substance: RIVAROXABAN
     Indication: PRODUCT USED FOR UNKNOWN INDICATION
     Dosage: UNK, UNKNOWN FREQ. (0?5 GW)
     Route: 065
  3. TORASEMIDE [Suspect]
     Active Substance: TORSEMIDE
     Indication: PRODUCT USED FOR UNKNOWN INDICATION
     Dosage: UNK, UNKNOWN FREQ. (0?14 GW)
     Route: 065
  4. ENOXAPARIN [Suspect]
     Active Substance: ENOXAPARIN
     Indication: PRODUCT USED FOR UNKNOWN INDICATION
     Dosage: UNK UNK, UNKNOWN FREQ. (0?14 GW)
     Route: 065
  5. EZETIMIBE. [Suspect]
     Active Substance: EZETIMIBE
     Indication: PRODUCT USED FOR UNKNOWN INDICATION
     Dosage: GESTATIONAL WEEK 0?14
     Route: 065
  6. METAMIZOLE [Suspect]
     Active Substance: METAMIZOLE
     Indication: PRODUCT USED FOR UNKNOWN INDICATION
     Dosage: GESTATIONAL WEEK 0?14
     Route: 065
  7. TACROLIMUS. [Suspect]
     Active Substance: TACROLIMUS
     Indication: PRODUCT USED FOR UNKNOWN INDICATION
     Dosage: GESTATIONAL WEEK 0?14
     Route: 065
  8. PANTOPRAZOLE [Suspect]
     Active Substance: PANTOPRAZOLE
     Indication: PRODUCT USED FOR UNKNOWN INDICATION
     Dosage: UNK, UNKNOWN FREQ. (0?14 GW)
     Route: 065
  9. PANTOPRAZOLE [Suspect]
     Active Substance: PANTOPRAZOLE
     Dosage: GESTATIONAL WEEK 0?14
     Route: 065
  10. ALISKIREN [Suspect]
     Active Substance: ALISKIREN
     Indication: PRODUCT USED FOR UNKNOWN INDICATION
     Dosage: GESTATIONAL WEEK 0?5
     Route: 065
  11. RAMIPRIL. [Suspect]
     Active Substance: RAMIPRIL
     Indication: HYPERTENSION
     Dosage: 20 MG, GESTATIONAL WEEK 0?13+6
     Route: 065
  12. SIMVASTATIN. [Suspect]
     Active Substance: SIMVASTATIN
     Indication: PRODUCT USED FOR UNKNOWN INDICATION
     Dosage: GESTATIONAL WEEK 0?14
     Route: 065
  13. PREDNISOLONE. [Suspect]
     Active Substance: PREDNISOLONE
     Indication: PRODUCT USED FOR UNKNOWN INDICATION
     Dosage: GESTATIONAL WEEK 0?14
     Route: 065
  14. ACETYLSALICYLIC ACID [Suspect]
     Active Substance: ASPIRIN
     Indication: PRODUCT USED FOR UNKNOWN INDICATION
     Dosage: GESTATIONAL WEEK 0?14
     Route: 065
  15. NICOTINE. [Suspect]
     Active Substance: NICOTINE
     Indication: PRODUCT USED FOR UNKNOWN INDICATION
     Dosage: GESTATIONAL WEEK 0?14
     Route: 065
  16. SALBUTAMOL [Suspect]
     Active Substance: ALBUTEROL
     Indication: PRODUCT USED FOR UNKNOWN INDICATION
     Dosage: UNK, UNKNOWN FREQ. (0?14 GW)
     Route: 065

REACTIONS (5)
  - Medication monitoring error [Unknown]
  - Premature delivery [Unknown]
  - Abortion induced [Unknown]
  - Contraindicated product administered [Unknown]
  - Maternal exposure during pregnancy [Unknown]
